FAERS Safety Report 7721360-X (Version None)
Quarter: 2011Q3

REPORT INFORMATION
  Report Type: 
  Country: None (occurrence: None)
  Receive Date: 20110831
  Receipt Date: 20110823
  Transmission Date: 20111222
  Serious: Yes (Other)
  Sender: FDA-Public Use
  Company Number: US-PFIZER INC-2011154599

PATIENT
  Sex: Female
  Weight: 52.154 kg

DRUGS (3)
  1. LAMICTAL [Suspect]
     Indication: BIPOLAR DISORDER
     Dosage: 150 MG, 2X/DAY
     Route: 048
     Dates: start: 20030101, end: 20110201
  2. ADDERALL 5 [Suspect]
     Indication: ATTENTION DEFICIT/HYPERACTIVITY DISORDER
     Dosage: 30 MG, 1X/DAY
     Route: 048
     Dates: start: 20030101, end: 20110201
  3. NEURONTIN [Suspect]
     Indication: BIPOLAR DISORDER
     Dosage: 100 MG, 2X/DAY
     Route: 048
     Dates: start: 20040101, end: 20110201

REACTIONS (5)
  - ILL-DEFINED DISORDER [None]
  - ANXIETY [None]
  - BIPOLAR DISORDER [None]
  - ATTENTION DEFICIT/HYPERACTIVITY DISORDER [None]
  - CRYING [None]
